FAERS Safety Report 18817052 (Version 2)
Quarter: 2021Q1

REPORT INFORMATION
  Report Type: Other
  Country: US (occurrence: US)
  Receive Date: 20210201
  Receipt Date: 20210312
  Transmission Date: 20210419
  Serious: Yes (Death, Hospitalization)
  Sender: FDA-Public Use
  Company Number: US-ROCHE-2757114

PATIENT
  Age: 39 Year
  Sex: Female

DRUGS (2)
  1. OCREVUS [Suspect]
     Active Substance: OCRELIZUMAB
     Dosage: 600 MG IV EVERY 6 MONTHS
     Route: 042
     Dates: start: 20200330, end: 20201008
  2. OCREVUS [Suspect]
     Active Substance: OCRELIZUMAB
     Indication: RELAPSING-REMITTING MULTIPLE SCLEROSIS
     Dosage: ONGOING: NO,300 MG IV ON WEEK O AND WEEK 2
     Route: 042
     Dates: start: 202004, end: 20201008

REACTIONS (7)
  - COVID-19 [Fatal]
  - Ataxia [Unknown]
  - Shock [Unknown]
  - Visual impairment [Unknown]
  - Respiratory failure [Unknown]
  - Renal failure [Unknown]
  - Pneumothorax [Unknown]

NARRATIVE: CASE EVENT DATE: 20201207
